FAERS Safety Report 5023955-3 (Version None)
Quarter: 2006Q2

REPORT INFORMATION
  Report Type: 
  Country: None (occurrence: None)
  Receive Date: 20060607
  Receipt Date: 20060525
  Transmission Date: 20061013
  Serious: Yes (Life-Threatening, Hospitalization)
  Sender: FDA-Public Use
  Company Number: US17657

PATIENT
  Age: 24 Year
  Sex: Female
  Weight: 54.4316 kg

DRUGS (5)
  1. ACTIQ [Suspect]
     Indication: STIFF-MAN SYNDROME
     Dosage: 800 MG BUCCAL
     Route: 002
     Dates: start: 20020101, end: 20020101
  2. ACTIQ [Suspect]
     Indication: STIFF-MAN SYNDROME
     Dosage: 1600 UG Q4HR BUCCAL
     Dates: start: 20020101
  3. MORPHINE [Suspect]
     Dates: start: 20030101, end: 20030101
  4. ZOFRAN [Concomitant]
  5. BACLOFEN [Concomitant]

REACTIONS (1)
  - RESPIRATORY ARREST [None]
